FAERS Safety Report 5037635-1 (Version None)
Quarter: 2006Q2

REPORT INFORMATION
  Report Type: 
  Country: None (occurrence: None)
  Receive Date: 20060626
  Receipt Date: 20060626
  Transmission Date: 20061013
  Serious: No
  Sender: FDA-Public Use
  Company Number: None

PATIENT
  Age: 46 Year
  Sex: Female
  Weight: 200 kg

DRUGS (1)
  1. TENUATE DOSPAN [Suspect]
     Indication: WEIGHT CONTROL
     Dosage: 30 TABS 1 DAY 75 MG TABS
     Dates: start: 20040602

REACTIONS (3)
  - ABDOMINAL PAIN UPPER [None]
  - DRUG INEFFECTIVE [None]
  - PHARMACEUTICAL PRODUCT COUNTERFEIT [None]
